FAERS Safety Report 14266762 (Version 2)
Quarter: 2018Q1

REPORT INFORMATION
  Report Type: Report from Study
  Country: None (occurrence: US)
  Receive Date: 20171211
  Receipt Date: 20180123
  Transmission Date: 20180508
  Serious: Yes (Other)
  Sender: FDA-Public Use
  Company Number: US-ABBVIE-17K-163-2186224-00

PATIENT
  Sex: Female

DRUGS (1)
  1. HUMIRA [Suspect]
     Active Substance: ADALIMUMAB
     Indication: RHEUMATOID ARTHRITIS
     Route: 058

REACTIONS (10)
  - Continuous positive airway pressure [Unknown]
  - Headache [Unknown]
  - Rotator cuff syndrome [Unknown]
  - Gait disturbance [Unknown]
  - Fatigue [Unknown]
  - Diabetes mellitus [Unknown]
  - Limb discomfort [Unknown]
  - Peripheral artery occlusion [Unknown]
  - Balance disorder [Unknown]
  - Psoriasis [Unknown]
